FAERS Safety Report 7499534-5 (Version None)
Quarter: 2011Q2

REPORT INFORMATION
  Report Type: 
  Country: None (occurrence: None)
  Receive Date: 20110516
  Receipt Date: 20110508
  Transmission Date: 20111010
  Serious: Yes (Other)
  Sender: FDA-Public Use
  Company Number: 2011SP020964

PATIENT
  Sex: Male

DRUGS (2)
  1. PEG-INTRON [Suspect]
     Indication: HEPATITIS C
  2. RIBASPHERE [Suspect]
     Indication: HEPATITIS C

REACTIONS (4)
  - NASAL CONGESTION [None]
  - RECTAL HAEMORRHAGE [None]
  - CONSTIPATION [None]
  - ABDOMINAL PAIN UPPER [None]
